FAERS Safety Report 12692665 (Version 1)
Quarter: 2016Q3

REPORT INFORMATION
  Report Type: Spontaneous
  Country: US (occurrence: None)
  Receive Date: 20160826
  Receipt Date: 20160826
  Transmission Date: 20161109
  Serious: Yes (Hospitalization)
  Sender: FDA-Public Use
  Company Number: None

PATIENT
  Age: 48 Year
  Sex: Female
  Weight: 79.7 kg

DRUGS (9)
  1. GABAPENTIN. [Concomitant]
     Active Substance: GABAPENTIN
  2. GLIPIZIDE. [Concomitant]
     Active Substance: GLIPIZIDE
  3. MOMETASONE FURO-FORMOTEROL FUM (DULERA) [Concomitant]
  4. VICTOZA [Suspect]
     Active Substance: LIRAGLUTIDE
     Indication: TYPE 2 DIABETES MELLITUS
     Route: 058
     Dates: start: 20160805, end: 20160822
  5. FERROUS SULFATE (IRON) [Concomitant]
  6. MELATONIN [Concomitant]
     Active Substance: MELATONIN
  7. METFORMIN HCL [Concomitant]
     Active Substance: METFORMIN HYDROCHLORIDE
  8. CINNAMON. [Concomitant]
     Active Substance: CINNAMON
  9. CHOLECALCIFEROL (VITAMIN D OR) [Concomitant]

REACTIONS (4)
  - Vomiting [None]
  - Diarrhoea [None]
  - Acute kidney injury [None]
  - Nausea [None]

NARRATIVE: CASE EVENT DATE: 20160822
